FAERS Safety Report 13549757 (Version 7)
Quarter: 2018Q3

REPORT INFORMATION
  Report Type: Report from Study
  Country: US (occurrence: US)
  Receive Date: 20170516
  Receipt Date: 20180924
  Transmission Date: 20181010
  Serious: Yes (Other)
  Sender: FDA-Public Use
  Company Number: PHEH2017US014562

PATIENT
  Sex: Female

DRUGS (3)
  1. FERROUS SULFATE. [Suspect]
     Active Substance: FERROUS SULFATE
     Indication: ANAEMIA
     Dosage: 325 MG, QD (AT BREAKFAST)
     Route: 065
  2. TUMS [Suspect]
     Active Substance: CALCIUM CARBONATE
     Indication: BLOOD CALCIUM INCREASED
     Route: 065
  3. AFINITOR [Suspect]
     Active Substance: EVEROLIMUS
     Indication: ANGIOMYOLIPOMA
     Dosage: 5 MG, QD
     Route: 048
     Dates: start: 20140219

REACTIONS (10)
  - Nausea [Unknown]
  - Fatigue [Recovering/Resolving]
  - Hepatic lesion [Unknown]
  - Anaemia [Unknown]
  - Constipation [Recovered/Resolved]
  - Hernia [Unknown]
  - Renal neoplasm [Unknown]
  - Dysphonia [Unknown]
  - Ill-defined disorder [Unknown]
  - Blood calcium increased [Recovering/Resolving]
